FAERS Safety Report 10161546 (Version 2)
Quarter: 2014Q2

REPORT INFORMATION
  Report Type: Spontaneous
  Country: US (occurrence: US)
  Receive Date: 20140509
  Receipt Date: 20140603
  Transmission Date: 20141212
  Serious: No
  Sender: FDA-Public Use
  Company Number: US-BIOGENIDEC-2014BI040667

PATIENT
  Age: 63 Year
  Sex: Female

DRUGS (4)
  1. AVONEX [Suspect]
     Indication: MULTIPLE SCLEROSIS
     Route: 030
  2. TECFIDERA [Concomitant]
     Indication: MULTIPLE SCLEROSIS
     Dates: start: 20140407
  3. REBIF [Concomitant]
  4. AUBAGIO [Concomitant]

REACTIONS (5)
  - Drug ineffective [Recovered/Resolved]
  - Atypical pneumonia [Recovered/Resolved]
  - Upper respiratory tract infection [Recovered/Resolved]
  - Intestinal cyst [Recovered/Resolved]
  - Muscular weakness [Not Recovered/Not Resolved]
